FAERS Safety Report 23551698 (Version 1)
Quarter: 2024Q1

REPORT INFORMATION
  Report Type: Spontaneous
  Country: US (occurrence: US)
  Receive Date: 20240222
  Receipt Date: 20240222
  Transmission Date: 20240410
  Serious: Yes (Hospitalization)
  Sender: FDA-Public Use
  Company Number: US-IPCA LABORATORIES LIMITED-IPC-2024-US-000393

PATIENT

DRUGS (1)
  1. WARFARIN SODIUM [Suspect]
     Active Substance: WARFARIN SODIUM
     Indication: Aortic stenosis
     Dosage: UNK
     Route: 065

REACTIONS (4)
  - Obstructive airways disorder [Recovering/Resolving]
  - Anticoagulation drug level above therapeutic [Recovering/Resolving]
  - Haematoma [Recovering/Resolving]
  - Dysphagia [Recovering/Resolving]
